FAERS Safety Report 6543621-2 (Version None)
Quarter: 2010Q1

REPORT INFORMATION
  Report Type: 
  Country: None (occurrence: None)
  Receive Date: 20100115
  Receipt Date: 20100105
  Transmission Date: 20100710
  Serious: Yes (Life-Threatening, Hospitalization, Other)
  Sender: FDA-Public Use
  Company Number: 2009-201153-NL

PATIENT
  Age: 42 Year
  Sex: Female
  Weight: 84.8226 kg

DRUGS (18)
  1. NUVARING [Suspect]
     Indication: CONTRACEPTION
     Dosage: 1 DF
     Dates: start: 20080221, end: 20080722
  2. RITALIN [Concomitant]
  3. ADDERALL 10 [Concomitant]
  4. WELLBUTRIN [Concomitant]
  5. INDERAL [Concomitant]
  6. XANAX [Concomitant]
  7. CALCIUM CITRATE [Concomitant]
  8. CELEXA [Concomitant]
  9. VITAMIN B-12 [Concomitant]
  10. CLARITIN [Concomitant]
  11. AMBIEN [Concomitant]
  12. PRAVACHOL [Concomitant]
  13. VICODIN [Concomitant]
  14. FLEXERIL [Concomitant]
  15. ATENOLOL [Concomitant]
  16. TYLENOL [Concomitant]
  17. SUMATRIPTAN SUCCINATE [Concomitant]
  18. NEXIUM [Concomitant]

REACTIONS (33)
  - ABDOMINAL INJURY [None]
  - ANXIETY [None]
  - ATELECTASIS [None]
  - BLOOD PRESSURE DECREASED [None]
  - CATHETER SITE HAEMORRHAGE [None]
  - CERVICAL CYST [None]
  - CONSTIPATION [None]
  - DEEP VEIN THROMBOSIS [None]
  - DEPRESSION [None]
  - DIZZINESS [None]
  - DYSFUNCTIONAL UTERINE BLEEDING [None]
  - ELECTROCARDIOGRAM T WAVE ABNORMAL [None]
  - FEAR OF DEATH [None]
  - HAEMATOCRIT DECREASED [None]
  - HAEMATOMA [None]
  - HAEMOGLOBIN DECREASED [None]
  - HEAD INJURY [None]
  - HEART RATE INCREASED [None]
  - HYPOTENSION [None]
  - MAMMOPLASTY [None]
  - MENSTRUATION IRREGULAR [None]
  - MUSCLE STRAIN [None]
  - MUSCULOSKELETAL PAIN [None]
  - NECK PAIN [None]
  - PRURITUS [None]
  - PULMONARY EMBOLISM [None]
  - PULSE ABSENT [None]
  - RASH [None]
  - ROAD TRAFFIC ACCIDENT [None]
  - SLEEP DISORDER [None]
  - URINE OUTPUT DECREASED [None]
  - VAGINAL HAEMORRHAGE [None]
  - VERTIGO [None]
